FAERS Safety Report 20301706 (Version 1)
Quarter: 2022Q1

REPORT INFORMATION
  Report Type: Spontaneous
  Country: US (occurrence: US)
  Receive Date: 20220105
  Receipt Date: 20220105
  Transmission Date: 20220424
  Serious: No
  Sender: FDA-Public Use
  Company Number: US-BIOCRYST-2021BCR00410

PATIENT
  Age: 43 Year
  Sex: Male
  Weight: 109.75 kg

DRUGS (4)
  1. ORLADEYO [Suspect]
     Active Substance: BEROTRALSTAT HYDROCHLORIDE
     Indication: Hereditary angioedema
     Dosage: 150 MG
     Route: 048
     Dates: start: 202108, end: 20210920
  2. TAKHZRYO [Concomitant]
     Dosage: UNK
     Dates: end: 2021
  3. TAKHZRYO [Concomitant]
     Dosage: UNK
     Dates: start: 20210920
  4. FIRAZYR [Concomitant]
     Active Substance: ICATIBANT ACETATE

REACTIONS (2)
  - Hereditary angioedema [Recovered/Resolved]
  - Sleep disorder [Recovered/Resolved]

NARRATIVE: CASE EVENT DATE: 20210901
